FAERS Safety Report 15309100 (Version 3)
Quarter: 2018Q3

REPORT INFORMATION
  Report Type: Report from Study
  Country: US (occurrence: US)
  Receive Date: 20180823
  Receipt Date: 20180904
  Transmission Date: 20181010
  Serious: No
  Sender: FDA-Public Use
  Company Number: US-AMGEN-USASL2018115549

PATIENT
  Sex: Female

DRUGS (1)
  1. ENBREL [Suspect]
     Active Substance: ETANERCEPT
     Indication: RHEUMATOID ARTHRITIS
     Dosage: 50 MG, QWK
     Route: 065
     Dates: end: 2018

REACTIONS (6)
  - Injection site warmth [Recovered/Resolved]
  - Injection site induration [Recovered/Resolved]
  - Injection site pain [Recovered/Resolved]
  - Injection site recall reaction [Recovering/Resolving]
  - Injection site pruritus [Recovered/Resolved]
  - Injection site erythema [Recovering/Resolving]

NARRATIVE: CASE EVENT DATE: 2018
